FAERS Safety Report 8067109-5 (Version None)
Quarter: 2012Q1

REPORT INFORMATION
  Report Type: 
  Country: None (occurrence: None)
  Receive Date: 20120124
  Receipt Date: 20120109
  Transmission Date: 20120608
  Serious: Yes (Other)
  Sender: FDA-Public Use
  Company Number: US-WATSON-2012-00627

PATIENT
  Age: 59 Year
  Sex: Female

DRUGS (2)
  1. DOCETAXEL [Suspect]
     Indication: ADENOID CYSTIC CARCINOMA
     Dosage: 75 MG/M(TO THE 2ND POWER) X2 CYCLES
     Route: 065
  2. CARBOPLATIN [Suspect]
     Indication: ADENOID CYSTIC CARCINOMA
     Dosage: AREA UNDER THE CONCENTRATION CURVE = 5, X2 CYCLES
     Route: 065

REACTIONS (2)
  - PANCYTOPENIA [None]
  - THROMBOCYTOPENIA [None]
